FAERS Safety Report 9786746 (Version 2)
Quarter: 2014Q1

REPORT INFORMATION
  Report Type: Spontaneous
  Country: US (occurrence: US)
  Receive Date: 20131227
  Receipt Date: 20140121
  Transmission Date: 20141002
  Serious: Yes (Other)
  Sender: FDA-Public Use
  Company Number: US-BAXTER-2013BAX051474

PATIENT
  Age: 70 Year
  Sex: Female
  Weight: 129.27 kg

DRUGS (2)
  1. GAMMAGARD LIQUID [Suspect]
     Indication: NEUROPATHY PERIPHERAL
     Route: 042
     Dates: start: 20130624
  2. GAMMAGARD LIQUID [Suspect]
     Indication: OFF LABEL USE

REACTIONS (4)
  - Hepatitis B antibody positive [Unknown]
  - Cellulitis [Recovered/Resolved]
  - Gout [Recovered/Resolved]
  - Weight decreased [Unknown]
